FAERS Safety Report 22159834 (Version 1)
Quarter: 2023Q1

REPORT INFORMATION
  Report Type: Spontaneous
  Country: JP (occurrence: JP)
  Receive Date: 20230331
  Receipt Date: 20230331
  Transmission Date: 20230417
  Serious: Yes (Other)
  Sender: FDA-Public Use
  Company Number: JP-Teva Takeda Yakuhin-2023-JP-000740J

PATIENT
  Age: 7 Decade
  Sex: Male

DRUGS (2)
  1. LANSOPRAZOLE [Suspect]
     Active Substance: LANSOPRAZOLE
     Indication: Helicobacter test positive
     Route: 048
     Dates: start: 2014, end: 20230323
  2. LANSOPRAZOLE [Suspect]
     Active Substance: LANSOPRAZOLE
     Indication: Hyperchlorhydria

REACTIONS (7)
  - Gastrinoma [Unknown]
  - Blood gastrin increased [Recovering/Resolving]
  - Blood glucose increased [Unknown]
  - Weight decreased [Unknown]
  - Arthralgia [Unknown]
  - Abdominal pain upper [Unknown]
  - Therapy cessation [Unknown]

NARRATIVE: CASE EVENT DATE: 20150101
